FAERS Safety Report 14165697 (Version 2)
Quarter: 2017Q4

REPORT INFORMATION
  Report Type: Spontaneous
  Country: CO (occurrence: CO)
  Receive Date: 20171107
  Receipt Date: 20171220
  Transmission Date: 20180321
  Serious: Yes (Death, Hospitalization, Other)
  Sender: FDA-Public Use
  Company Number: CO-ALEXION PHARMACEUTICALS INC.-A201712112

PATIENT
  Sex: Male
  Weight: 65 kg

DRUGS (2)
  1. SOLIRIS [Suspect]
     Active Substance: ECULIZUMAB
     Dosage: 1200 MG, Q2W
     Route: 042
     Dates: start: 20171018
  2. SOLIRIS [Suspect]
     Active Substance: ECULIZUMAB
     Indication: HAEMOLYTIC URAEMIC SYNDROME
     Dosage: 900 MG, QW
     Route: 042
     Dates: start: 20170922

REACTIONS (8)
  - Necrotising fasciitis [Fatal]
  - Multiple organ dysfunction syndrome [Fatal]
  - Erythema [Fatal]
  - Pain in extremity [Fatal]
  - Oedema peripheral [Fatal]
  - Respiratory distress [Fatal]
  - Respiratory failure [Fatal]
  - Escherichia bacteraemia [Fatal]
